FAERS Safety Report 10553578 (Version 1)
Quarter: 2014Q4

REPORT INFORMATION
  Report Type: Spontaneous
  Country: CN (occurrence: CN)
  Receive Date: 20141030
  Receipt Date: 20141030
  Transmission Date: 20150529
  Serious: Yes (Other)
  Sender: FDA-Public Use
  Company Number: CN-CIPLA LTD.-2014CN01573

PATIENT

DRUGS (3)
  1. S-1 [Suspect]
     Active Substance: GIMERACIL\OTERACIL\TEGAFUR
     Dosage: 80 MG/ M2 PER DAY TWICE DAILY FROM DAY 1 TO DAY 14 AND FROM DAY 22 TO DAY 35
     Route: 048
  2. S-1 [Suspect]
     Active Substance: GIMERACIL\OTERACIL\TEGAFUR
     Indication: PANCREATIC CARCINOMA
     Dosage: 40 MG/M2 TWICE DAILY FROM DAY 1 TO DAY 14 OF A 21-DAY CYCLE
     Route: 048
  3. GEMCITABINE [Suspect]
     Active Substance: GEMCITABINE\GEMCITABINE HYDROCHLORIDE
     Indication: PANCREATIC CARCINOMA
     Dosage: 1000 MG/M2 ON DAY 1 AND DAY 8

REACTIONS (1)
  - Gastritis haemorrhagic [Unknown]
